FAERS Safety Report 14284255 (Version 1)
Quarter: 2017Q4

REPORT INFORMATION
  Report Type: Spontaneous
  Country: US (occurrence: US)
  Receive Date: 20171214
  Receipt Date: 20171214
  Transmission Date: 20180321
  Serious: No
  Sender: FDA-Public Use
  Company Number: None

PATIENT
  Age: 74 Year
  Sex: Female
  Weight: 50.85 kg

DRUGS (5)
  1. PROVASTATIN [Concomitant]
  2. FISH OIL [Concomitant]
     Active Substance: FISH OIL
  3. LORSATAN POTASSIUM [Suspect]
     Active Substance: LOSARTAN POTASSIUM
     Indication: HYPERTENSION
     Dosage: ?          QUANTITY:2 TABLET(S);?
     Route: 048
     Dates: start: 20171027, end: 20171027
  4. COQ10 [Concomitant]
     Active Substance: UBIDECARENONE
  5. ASPIRIN. [Concomitant]
     Active Substance: ASPIRIN

REACTIONS (7)
  - Headache [None]
  - Memory impairment [None]
  - Nausea [None]
  - Fatigue [None]
  - Dizziness [None]
  - Constipation [None]
  - Feeling abnormal [None]

NARRATIVE: CASE EVENT DATE: 20171027
